FAERS Safety Report 24771878 (Version 1)
Quarter: 2024Q4

REPORT INFORMATION
  Report Type: Spontaneous
  Country: FR (occurrence: FR)
  Receive Date: 20241224
  Receipt Date: 20241224
  Transmission Date: 20250114
  Serious: Yes (Hospitalization, Other)
  Sender: BRISTOL-MYERS SQUIBB COMPANY
  Company Number: None

PATIENT
  Age: 53 Year
  Sex: Female
  Weight: 70 kg

DRUGS (6)
  1. AZACTAM [Suspect]
     Active Substance: AZTREONAM
     Indication: Pseudomonal sepsis
     Dosage: POWDER AND SOLUTION FOR PARENTERAL USE
     Route: 042
     Dates: start: 20240831, end: 20240906
  2. COLISTIMETHATE SODIUM [Suspect]
     Active Substance: COLISTIMETHATE SODIUM
     Indication: Pseudomonal sepsis
     Route: 042
     Dates: start: 20240831, end: 20240831
  3. COLISTIMETHATE SODIUM [Suspect]
     Active Substance: COLISTIMETHATE SODIUM
     Route: 042
     Dates: start: 20240902, end: 20240909
  4. GABAPENTIN [Suspect]
     Active Substance: GABAPENTIN
     Indication: Product used for unknown indication
     Route: 048
     Dates: start: 20240819, end: 20240906
  5. LEVOFLOXACIN [Suspect]
     Active Substance: LEVOFLOXACIN
     Indication: Pseudomonal sepsis
     Dosage: SCORED FILM-COATED TABLET
     Route: 048
     Dates: start: 20240830, end: 20240904
  6. METRONIDAZOLE [Suspect]
     Active Substance: METRONIDAZOLE
     Indication: Pseudomonal sepsis
     Dosage: SCORED FILM-COATED TABLET
     Route: 048
     Dates: start: 20240829, end: 20240903

REACTIONS (3)
  - Confusional state [Recovered/Resolved]
  - Aggression [Recovered/Resolved]
  - Persecutory delusion [Recovered/Resolved]

NARRATIVE: CASE EVENT DATE: 20240903
